FAERS Safety Report 18538256 (Version 4)
Quarter: 2021Q1

REPORT INFORMATION
  Report Type: Other
  Country: ES (occurrence: ES)
  Receive Date: 20201124
  Receipt Date: 20210315
  Transmission Date: 20210419
  Serious: Yes (Other)
  Sender: FDA-Public Use
  Company Number: ES-ROCHE-2716704

PATIENT

DRUGS (5)
  1. METHYLPREDNISOLONE. [Suspect]
     Active Substance: METHYLPREDNISOLONE
     Indication: GLOMERULONEPHRITIS MEMBRANOUS
     Dosage: 1 G INTRAVENOUSLY AT DAYS 1, 2, 3,
     Route: 042
  2. RITUXIMAB. [Suspect]
     Active Substance: RITUXIMAB
     Indication: GLOMERULONEPHRITIS MEMBRANOUS
     Dosage: AT DAY 180, PATIENTS RECEIVED INTRAVENOUS RITUXIMAB (1 G)
     Route: 042
  3. CYCLOPHOSPHAMIDE. [Suspect]
     Active Substance: CYCLOPHOSPHAMIDE
     Indication: GLOMERULONEPHRITIS MEMBRANOUS
     Dosage: AT MONTHS 2, 4 AND 6, PATIENTS RECEIVED ORAL CYCLOPHOSPHAMIDE ADJUSTED FOR AGE AND RENAL FUNCTION (1
     Route: 048
  4. TACROLIMUS. [Suspect]
     Active Substance: TACROLIMUS
     Indication: GLOMERULONEPHRITIS MEMBRANOUS
     Dosage: ADJUSTED TO ACHIEVE TARGET BLOOD LEVELS OF 5?7 NG/ML, FOR SIX MONTHS. STARTING AT THE END OF MONTH 6
     Route: 048
  5. METHYLPREDNISOLONE. [Suspect]
     Active Substance: METHYLPREDNISOLONE
     Dosage: 0.5 MG/KG/DAY ORALLY FROM DAY 4 TO 30
     Route: 048

REACTIONS (5)
  - Acute coronary syndrome [Unknown]
  - Tuberculosis [Unknown]
  - Hyperkalaemia [Unknown]
  - Pneumonia [Unknown]
  - Acute kidney injury [Unknown]
